FAERS Safety Report 9914177 (Version 1)
Quarter: 2014Q1

REPORT INFORMATION
  Report Type: Spontaneous
  Country: ES (occurrence: None)
  Receive Date: 20140218
  Receipt Date: 20140218
  Transmission Date: 20141002
  Serious: Yes (Death, Other)
  Sender: FDA-Public Use
  Company Number: ES-ACS-000007

PATIENT
  Age: 60 Year
  Sex: Male

DRUGS (2)
  1. CEFEPIME [Suspect]
     Indication: RESPIRATORY TRACT INFECTION
     Dosage: 3 X 2 G EVERY 1 DAY(S) INTRAVENOUS (N
  2. TACROLIMUS [Concomitant]

REACTIONS (4)
  - Coma [None]
  - Status epilepticus [None]
  - Myoclonus [None]
  - Cardiac failure [None]
